FAERS Safety Report 23647079 (Version 1)
Quarter: 2024Q1

REPORT INFORMATION
  Report Type: Spontaneous
  Country: AU (occurrence: AU)
  Receive Date: 20240319
  Receipt Date: 20240319
  Transmission Date: 20240410
  Serious: Yes (Hospitalization, Other)
  Sender: FDA-Public Use
  Company Number: AU-Accord-412454

PATIENT
  Age: 60 Year
  Sex: Female

DRUGS (1)
  1. CLOZAPINE [Suspect]
     Active Substance: CLOZAPINE
     Indication: Schizophrenia
     Dosage: 450 MG NOCTE

REACTIONS (6)
  - Intestinal pseudo-obstruction [Unknown]
  - Colitis ischaemic [Unknown]
  - Haemorrhage [Unknown]
  - Abdominal sepsis [Unknown]
  - Acute kidney injury [Unknown]
  - Septic shock [Unknown]
